FAERS Safety Report 6573139-2 (Version None)
Quarter: 2010Q1

REPORT INFORMATION
  Report Type: 
  Country: None (occurrence: None)
  Receive Date: 20100208
  Receipt Date: 20100127
  Transmission Date: 20100710
  Serious: Yes (Other)
  Sender: FDA-Public Use
  Company Number: US-ELI_LILLY_AND_COMPANY-US200912004139

PATIENT
  Sex: Female

DRUGS (2)
  1. EVISTA [Suspect]
     Indication: OSTEOPOROSIS
     Dosage: 60 MG, DAILY (1/D)
     Route: 065
     Dates: start: 19970101
  2. ACTONEL [Concomitant]
     Indication: OSTEOPOROSIS
     Dosage: 150 UNK, UNKNOWN
     Route: 065

REACTIONS (1)
  - ENDOMETRIAL CANCER [None]
